FAERS Safety Report 6040454-0 (Version None)
Quarter: 2009Q1

REPORT INFORMATION
  Report Type: 
  Country: None (occurrence: None)
  Receive Date: 20090116
  Receipt Date: 20080311
  Transmission Date: 20090719
  Serious: No
  Sender: FDA-Public Use
  Company Number: US-BRISTOL-MYERS SQUIBB COMPANY-14110167

PATIENT
  Age: 30 Year
  Sex: Female
  Weight: 79 kg

DRUGS (3)
  1. ABILIFY [Suspect]
     Indication: BIPOLAR DISORDER
  2. DEPAKOTE [Concomitant]
  3. LITHIUM [Concomitant]

REACTIONS (1)
  - EXTRAPYRAMIDAL DISORDER [None]
